FAERS Safety Report 6584302-9 (Version None)
Quarter: 2010Q1

REPORT INFORMATION
  Report Type: 
  Country: None (occurrence: None)
  Receive Date: 20100216
  Receipt Date: 20100209
  Transmission Date: 20100710
  Serious: No
  Sender: FDA-Public Use
  Company Number: US-ABBOTT-10P-163-0625435-00

PATIENT
  Sex: Male
  Weight: 95.34 kg

DRUGS (7)
  1. SIMCOR [Suspect]
     Indication: DRUG USE FOR UNKNOWN INDICATION
     Dates: start: 20100202
  2. GLUCOSAMINE/CHONDROITIN [Concomitant]
     Indication: DRUG USE FOR UNKNOWN INDICATION
  3. CENTRUM SILVER [Concomitant]
     Indication: DRUG USE FOR UNKNOWN INDICATION
  4. ASPIRIN [Concomitant]
     Indication: DRUG USE FOR UNKNOWN INDICATION
  5. GARLIC [Concomitant]
     Indication: DRUG USE FOR UNKNOWN INDICATION
  6. SERUM INJECTION LIKE AN ALLERGY SHOT [Concomitant]
     Indication: DRUG USE FOR UNKNOWN INDICATION
  7. OTHER SUPPLEMENTS [Concomitant]
     Indication: CANDIDIASIS

REACTIONS (4)
  - CONSTIPATION [None]
  - NAUSEA [None]
  - PAIN IN EXTREMITY [None]
  - PRURITUS [None]
